FAERS Safety Report 12109864 (Version 1)
Quarter: 2016Q1

REPORT INFORMATION
  Report Type: Spontaneous
  Country: US (occurrence: None)
  Receive Date: 20160222
  Receipt Date: 20160222
  Transmission Date: 20160526
  Serious: No
  Sender: FDA-Public Use
  Company Number: None

PATIENT
  Age: 73 Year
  Sex: Male
  Weight: 117.5 kg

DRUGS (1)
  1. HEPARIN [Suspect]
     Active Substance: HEPARIN SODIUM
     Indication: ATRIAL FIBRILLATION
     Dates: start: 20151001, end: 20151002

REACTIONS (4)
  - Subdural haematoma [None]
  - Dysarthria [None]
  - Atrial fibrillation [None]
  - Hemiparesis [None]

NARRATIVE: CASE EVENT DATE: 20151002
